FAERS Safety Report 23697337 (Version 4)
Quarter: 2024Q2

REPORT INFORMATION
  Report Type: Spontaneous
  Country: US (occurrence: US)
  Receive Date: 20240402
  Receipt Date: 20240624
  Transmission Date: 20240715
  Serious: No
  Sender: FDA-Public Use
  Company Number: US-PFIZER INC-202400071009

PATIENT
  Age: 14 Year
  Sex: Male

DRUGS (2)
  1. GENOTROPIN [Suspect]
     Active Substance: SOMATROPIN
     Indication: Hypopituitarism
     Dosage: 1.4MG AND 1.6 MG EVERY OTHER NIGHT TO ACHIEVE ORDERED DOSE OF 1.5MG
  2. GENOTROPIN [Suspect]
     Active Substance: SOMATROPIN
     Indication: Growth hormone deficiency
     Dosage: 1.4MG AND 1.6 MG EVERY OTHER NIGHT TO ACHIEVE ORDERED DOSE OF 1.5MG

REACTIONS (1)
  - Device leakage [Unknown]
